FAERS Safety Report 6552240-3 (Version None)
Quarter: 2010Q1

REPORT INFORMATION
  Report Type: 
  Country: None (occurrence: None)
  Receive Date: 20100126
  Receipt Date: 20100121
  Transmission Date: 20100710
  Serious: Yes (Hospitalization)
  Sender: FDA-Public Use
  Company Number: BE-ABBOTT-09P-013-0611131-00

PATIENT
  Sex: Male

DRUGS (11)
  1. HUMIRA [Suspect]
     Indication: RHEUMATOID ARTHRITIS
  2. ARAVA [Concomitant]
     Indication: ARTHRITIS
  3. PREDNISOLONE [Concomitant]
     Indication: ARTHRITIS
  4. ASAFLOW [Concomitant]
     Indication: DRUG USE FOR UNKNOWN INDICATION
  5. PANTOMED [Concomitant]
     Indication: DRUG USE FOR UNKNOWN INDICATION
  6. SIMVASTATIN [Concomitant]
     Indication: DRUG USE FOR UNKNOWN INDICATION
  7. ZESTRIL [Concomitant]
     Indication: DRUG USE FOR UNKNOWN INDICATION
  8. ZANIDIP [Concomitant]
     Indication: DRUG USE FOR UNKNOWN INDICATION
  9. SELOKEN [Concomitant]
     Indication: DRUG USE FOR UNKNOWN INDICATION
  10. CACIT D3 [Concomitant]
     Indication: DRUG USE FOR UNKNOWN INDICATION
  11. MAREVAN [Concomitant]
     Indication: DRUG USE FOR UNKNOWN INDICATION

REACTIONS (4)
  - ANAEMIA [None]
  - GASTRITIS EROSIVE [None]
  - MELAENA [None]
  - OESOPHAGITIS [None]
